FAERS Safety Report 9677490 (Version 1)
Quarter: 2013Q4

REPORT INFORMATION
  Report Type: Report from Study
  Country: US (occurrence: US)
  Receive Date: 20131108
  Receipt Date: 20131108
  Transmission Date: 20140711
  Serious: Yes (Other)
  Sender: FDA-Public Use
  Company Number: PHEH2013US023143

PATIENT
  Sex: Female

DRUGS (3)
  1. GLEEVEC [Suspect]
     Indication: CHRONIC MYELOID LEUKAEMIA
     Dosage: 400 MG, DAILY
     Route: 048
     Dates: start: 20130531
  2. LOPRESSOR [Concomitant]
     Dosage: UNK UKN, UNK
  3. ISOSORBIDE [Concomitant]
     Dosage: UNK UKN, UNK

REACTIONS (2)
  - Fall [Unknown]
  - Dizziness [Unknown]
